FAERS Safety Report 17716161 (Version 1)
Quarter: 2020Q2

REPORT INFORMATION
  Report Type: Spontaneous
  Country: DE (occurrence: DE)
  Receive Date: 20200428
  Receipt Date: 20200428
  Transmission Date: 20200714
  Serious: Yes (Hospitalization)
  Sender: FDA-Public Use
  Company Number: DE-UCBSA-2020017456

PATIENT
  Age: 9 Year
  Sex: Female
  Weight: 33 kg

DRUGS (1)
  1. KEPPRA [Suspect]
     Active Substance: LEVETIRACETAM
     Indication: PARTIAL SEIZURES
     Dosage: 16ML DAILY, 2 SEPARATED DOSES
     Route: 048

REACTIONS (3)
  - Hemiparesis [Recovered/Resolved]
  - General physical health deterioration [Recovered/Resolved]
  - Gait deviation [Recovered/Resolved]

NARRATIVE: CASE EVENT DATE: 20200309
